FAERS Safety Report 23564790 (Version 2)
Quarter: 2024Q1

REPORT INFORMATION
  Report Type: Spontaneous
  Country: US (occurrence: US)
  Receive Date: 20240226
  Receipt Date: 20240320
  Transmission Date: 20240410
  Serious: No
  Sender: FDA-Public Use
  Company Number: US-PFIZER INC-202400035908

PATIENT
  Age: 13 Year
  Sex: Male

DRUGS (1)
  1. GENOTROPIN [Suspect]
     Active Substance: SOMATROPIN
     Dosage: 1.6MG ONCE A DAY BY INJECTION 6 DAYS A WEEK.
     Dates: start: 20240205

REACTIONS (2)
  - Poor quality device used [Unknown]
  - Device-device incompatibility [Unknown]
